FAERS Safety Report 7202090-X (Version None)
Quarter: 2010Q4

REPORT INFORMATION
  Report Type: 
  Country: None (occurrence: None)
  Receive Date: 20101229
  Receipt Date: 20101217
  Transmission Date: 20110411
  Serious: Yes (Death)
  Sender: FDA-Public Use
  Company Number: JP-AMGEN-JPNCT2010000647

PATIENT

DRUGS (1)
  1. PANITUMUMAB [Suspect]
     Indication: COLORECTAL CANCER
     Dosage: UNK, QCYCLE
     Route: 041
     Dates: start: 20100827, end: 20100910

REACTIONS (5)
  - COLORECTAL CANCER [None]
  - ILEUS [None]
  - MALIGNANT PLEURAL EFFUSION [None]
  - RENAL IMPAIRMENT [None]
  - STOMATITIS [None]
